FAERS Safety Report 22532229 (Version 1)
Quarter: 2023Q2

REPORT INFORMATION
  Report Type: Spontaneous
  Country: CN (occurrence: None)
  Receive Date: 20230607
  Receipt Date: 20230607
  Transmission Date: 20230722
  Serious: Yes (Hospitalization)
  Sender: FDA-Public Use
  Company Number: 2023A130709

PATIENT
  Age: 80 Year
  Sex: Female
  Weight: 50 kg

DRUGS (4)
  1. DAPAGLIFLOZIN [Suspect]
     Active Substance: DAPAGLIFLOZIN
     Indication: Type 2 diabetes mellitus
     Route: 048
     Dates: start: 20230409, end: 20230507
  2. ACARBOSE [Concomitant]
     Active Substance: ACARBOSE
     Indication: Type 2 diabetes mellitus
     Route: 048
     Dates: start: 20230407, end: 20230507
  3. DEXTROSE [Concomitant]
     Active Substance: DEXTROSE\DEXTROSE MONOHYDRATE
     Dosage: 10 G VIA INTRAVENOUS INJECTION + 5% GLUCOSE INJECTION 250 ML IVGTT
  4. METFORMIN HYDROCHLORIDE [Concomitant]
     Active Substance: METFORMIN HYDROCHLORIDE
     Dosage: TABLETS 1 TABLET BID,
     Route: 048

REACTIONS (1)
  - Hypoglycaemic coma [Recovering/Resolving]

NARRATIVE: CASE EVENT DATE: 20230507
